FAERS Safety Report 15520061 (Version 1)
Quarter: 2018Q4

REPORT INFORMATION
  Report Type: Report from Study
  Country: US (occurrence: US)
  Receive Date: 20181017
  Receipt Date: 20181017
  Transmission Date: 20190205
  Serious: No
  Sender: FDA-Public Use
  Company Number: US-AMGEN-USASL2018102947

PATIENT
  Age: 72 Year
  Sex: Female

DRUGS (2)
  1. REPATHA [Suspect]
     Active Substance: EVOLOCUMAB
     Indication: HYPERCHOLESTEROLAEMIA
     Dosage: 140 MG, Q2WK
     Route: 065
     Dates: end: 201807
  2. CYMBALTA [Concomitant]
     Active Substance: DULOXETINE HYDROCHLORIDE
     Dosage: UNK

REACTIONS (16)
  - Headache [Unknown]
  - Peripheral swelling [Unknown]
  - Formication [Unknown]
  - Influenza like illness [Unknown]
  - Balance disorder [Unknown]
  - Neck pain [Unknown]
  - Chills [Unknown]
  - Abdominal discomfort [Unknown]
  - Tinnitus [Unknown]
  - Dizziness [Unknown]
  - Memory impairment [Unknown]
  - Muscle spasms [Unknown]
  - Arthralgia [Unknown]
  - Malaise [Unknown]
  - Oropharyngeal pain [Unknown]
  - Gastric disorder [Unknown]

NARRATIVE: CASE EVENT DATE: 20180815
